FAERS Safety Report 11768326 (Version 1)
Quarter: 2015Q4

REPORT INFORMATION
  Report Type: Spontaneous
  Country: US (occurrence: US)
  Receive Date: 20151123
  Receipt Date: 20151123
  Transmission Date: 20160304
  Serious: Yes (Other)
  Sender: FDA-Public Use
  Company Number: US-TEVA-595176USA

PATIENT
  Age: 55 Year
  Sex: Female

DRUGS (5)
  1. ZYPREXA [Concomitant]
     Active Substance: OLANZAPINE
  2. TRAZODONE [Concomitant]
     Active Substance: TRAZODONE HYDROCHLORIDE
  3. PERPHENAZINE. [Concomitant]
     Active Substance: PERPHENAZINE
  4. LORAZEPAM. [Concomitant]
     Active Substance: LORAZEPAM
  5. CLOZAPINE. [Suspect]
     Active Substance: CLOZAPINE
     Route: 065

REACTIONS (2)
  - Pyrexia [Recovered/Resolved]
  - Malaise [Unknown]

NARRATIVE: CASE EVENT DATE: 20150814
